FAERS Safety Report 6580008-0 (Version None)
Quarter: 2010Q1

REPORT INFORMATION
  Report Type: 
  Country: None (occurrence: None)
  Receive Date: 20100212
  Receipt Date: 20100201
  Transmission Date: 20100710
  Serious: Yes (Hospitalization)
  Sender: FDA-Public Use
  Company Number: JP-WATSON-2010-01311

PATIENT
  Age: 71 Year
  Sex: Male
  Weight: 70 kg

DRUGS (1)
  1. HEPARIN SODIUM [Suspect]
     Indication: PULMONARY EMBOLISM
     Dosage: 10000 UNITS, DAILY

REACTIONS (1)
  - CEREBRAL INFARCTION [None]
